FAERS Safety Report 8042874-1 (Version None)
Quarter: 2012Q1

REPORT INFORMATION
  Report Type: 
  Country: None (occurrence: None)
  Receive Date: 20120112
  Receipt Date: 20120104
  Transmission Date: 20120608
  Serious: Yes (Other)
  Sender: FDA-Public Use
  Company Number: US-JNJFOC-20120103054

PATIENT
  Age: 41 Year
  Sex: Female
  Weight: 61.68 kg

DRUGS (2)
  1. ACETAMINOPHEN AND HYDROCODONE BITARTRATE [Concomitant]
     Indication: FIBROMYALGIA
  2. IBUPROFEN [Suspect]
     Indication: FIBROMYALGIA
     Route: 048
     Dates: start: 19960101

REACTIONS (2)
  - MENINGITIS [None]
  - OVERDOSE [None]
